FAERS Safety Report 19041144 (Version 4)
Quarter: 2022Q1

REPORT INFORMATION
  Report Type: Report from Study
  Country: IT (occurrence: IT)
  Receive Date: 20210322
  Receipt Date: 20220216
  Transmission Date: 20220423
  Serious: Yes (Death, Life-Threatening)
  Sender: FDA-Public Use
  Company Number: IT-VER-202100002

PATIENT
  Age: 60 Year
  Sex: Male

DRUGS (3)
  1. TRIPTORELIN PAMOATE [Suspect]
     Active Substance: TRIPTORELIN PAMOATE
     Indication: Salivary gland cancer
     Dosage: 3.75 MG
     Route: 030
     Dates: start: 20190225, end: 20210127
  2. BICALUTAMIDE [Concomitant]
     Active Substance: BICALUTAMIDE
     Indication: Salivary gland cancer
     Route: 065
  3. BICALUTAMIDE [Concomitant]
     Active Substance: BICALUTAMIDE
     Indication: Salivary gland cancer
     Dosage: 50 MG
     Route: 048
     Dates: start: 20190219, end: 20210207

REACTIONS (1)
  - Brain abscess [Fatal]

NARRATIVE: CASE EVENT DATE: 20210211
